FAERS Safety Report 8042527-X (Version None)
Quarter: 2011Q4

REPORT INFORMATION
  Report Type: 
  Country: None (occurrence: None)
  Receive Date: 20111202
  Receipt Date: 20100518
  Transmission Date: 20120403
  Serious: Yes (Hospitalization, Other)
  Sender: FDA-Public Use
  Company Number: 2004-121159-NL

PATIENT
  Age: 31 Year
  Sex: Female
  Weight: 90.7194 kg

DRUGS (8)
  1. IBUPROFEN [Concomitant]
  2. ACETAMINOPHEN [Concomitant]
  3. NUVARING [Suspect]
     Indication: CONTRACEPTION
     Dosage: ;VAG
     Route: 067
     Dates: start: 20040825, end: 20040929
  4. NUVARING [Suspect]
     Indication: CONTRACEPTION
     Dosage: ;VAG
     Route: 067
     Dates: start: 20040721, end: 20040818
  5. NEXIUM --/--/2002 - --/--/2010 [Concomitant]
  6. PROZAC --/--/1987 - --/--/2009 [Concomitant]
  7. LEXAPRO --/--/2004 - --/--/2010 [Concomitant]
  8. BENADRYL [Concomitant]

REACTIONS (3)
  - PULMONARY EMBOLISM [None]
  - PRURITUS [None]
  - THROMBOSIS [None]
